FAERS Safety Report 5171452-7 (Version None)
Quarter: 2006Q4

REPORT INFORMATION
  Report Type: 
  Country: None (occurrence: None)
  Receive Date: 20061208
  Receipt Date: 20061208
  Transmission Date: 20070319
  Serious: Yes (Death)
  Sender: FDA-Public Use
  Company Number: None

PATIENT
  Age: 65 Year
  Sex: Male
  Weight: 80 kg

DRUGS (2)
  1. REVELIMID [Suspect]
     Indication: MULTIPLE MYELOMA
     Dosage: 3RD 28 DAY CYCLE
  2. DEXAMETHASONE [Suspect]

REACTIONS (10)
  - DIVERTICULAR PERFORATION [None]
  - DIVERTICULITIS [None]
  - HYPOXIA [None]
  - LABORATORY TEST ABNORMAL [None]
  - NEUTROPHIL COUNT DECREASED [None]
  - PERITONEAL DISORDER [None]
  - PLATELET COUNT DECREASED [None]
  - RESPIRATORY FAILURE [None]
  - SEPTIC SHOCK [None]
  - WHITE BLOOD CELL COUNT DECREASED [None]
